FAERS Safety Report 18460109 (Version 1)
Quarter: 2020Q4

REPORT INFORMATION
  Report Type: Spontaneous
  Country: NL (occurrence: NL)
  Receive Date: 20201104
  Receipt Date: 20201104
  Transmission Date: 20210114
  Serious: Yes (Hospitalization)
  Sender: FDA-Public Use
  Company Number: NL-ALVOGEN-2020-ALVOGEN-115077

PATIENT
  Age: 60 Year
  Sex: Female

DRUGS (1)
  1. LISINOPRIL. [Suspect]
     Active Substance: LISINOPRIL
     Indication: PRODUCT USED FOR UNKNOWN INDICATION
     Route: 048

REACTIONS (4)
  - Pleural effusion [Recovering/Resolving]
  - Pancreatitis chronic [Unknown]
  - Pancreatic pseudocyst [Recovered/Resolved]
  - Pancreatic fistula [Unknown]
